FAERS Safety Report 12168847 (Version 2)
Quarter: 2016Q3

REPORT INFORMATION
  Report Type: Spontaneous
  Country: US (occurrence: US)
  Receive Date: 20160310
  Receipt Date: 20160713
  Transmission Date: 20161109
  Serious: Yes (Death)
  Sender: FDA-Public Use
  Company Number: US-ELI_LILLY_AND_COMPANY-US201603003237

PATIENT
  Age: 61 Year
  Sex: Male

DRUGS (6)
  1. AXIRON [Suspect]
     Active Substance: TESTOSTERONE
     Indication: ANDROGEN DEFICIENCY
     Dosage: UNK UNK, UNKNOWN
     Route: 065
     Dates: start: 201109, end: 201111
  2. VIAGRA [Concomitant]
     Active Substance: SILDENAFIL CITRATE
     Route: 065
  3. ANDROGEL [Suspect]
     Active Substance: TESTOSTERONE
     Indication: ANDROGEN DEFICIENCY
     Dosage: UNK
     Route: 065
     Dates: start: 201109, end: 201111
  4. TRICOR                             /00090101/ [Concomitant]
     Active Substance: ADENOSINE
     Route: 065
  5. LOSARTAN + HIDROCLOROTIAZIDA       /01284801/ [Concomitant]
     Active Substance: HYDROCHLOROTHIAZIDE\LOSARTAN POTASSIUM
     Route: 065
  6. CRESTOR [Concomitant]
     Active Substance: ROSUVASTATIN CALCIUM
     Route: 065

REACTIONS (1)
  - Arteriosclerosis [Fatal]

NARRATIVE: CASE EVENT DATE: 20111104
